FAERS Safety Report 8044664-2 (Version None)
Quarter: 2012Q1

REPORT INFORMATION
  Report Type: 
  Country: None (occurrence: None)
  Receive Date: 20120113
  Receipt Date: 20120103
  Transmission Date: 20120608
  Serious: Yes (Hospitalization)
  Sender: FDA-Public Use
  Company Number: NL-NOVOPROD-342461

PATIENT

DRUGS (2)
  1. VICTOZA [Suspect]
     Indication: METABOLIC SYNDROME
     Dosage: 0.6
     Route: 065
     Dates: start: 20111104, end: 20111130
  2. METFORMIN HCL [Concomitant]
     Dosage: 2DD 500MG
     Dates: start: 20070101

REACTIONS (1)
  - DIVERTICULITIS [None]
